FAERS Safety Report 6765561-6 (Version None)
Quarter: 2010Q2

REPORT INFORMATION
  Report Type: 
  Country: None (occurrence: None)
  Receive Date: 20100611
  Receipt Date: 20100529
  Transmission Date: 20101027
  Serious: Yes (Other)
  Sender: FDA-Public Use
  Company Number: PHHY2010DE13399

PATIENT
  Sex: Male
  Weight: 93 kg

DRUGS (13)
  1. ALISKIREN ALI+ [Suspect]
     Indication: HYPERTENSION
     Dosage: UNK
     Dates: start: 20090226
  2. EXFORGE [Suspect]
     Dosage: UNK
  3. ORAL ANTIDIABETICS [Concomitant]
     Indication: DIABETES MELLITUS
     Dosage: UNK
  4. INSULIN [Concomitant]
     Indication: DIABETES MELLITUS
  5. ACE INHIBITOR NOS [Concomitant]
     Dosage: UNK
     Dates: end: 20090226
  6. CALCIUM CHANNEL BLOCKERS [Concomitant]
  7. DIURETICS [Concomitant]
  8. PLATELET AGGREGATION INHIBITORS [Concomitant]
     Dosage: UNK
  9. ACETYLSALICYLIC ACID [Concomitant]
     Indication: PLATELET AGGREGATION INHIBITION
     Dosage: 100 MG
     Route: 048
     Dates: start: 20030101
  10. METFORMIN [Concomitant]
     Indication: DIABETES MELLITUS
     Dosage: 2000 MG
     Route: 048
     Dates: start: 20040101
  11. TORSEMIDE [Concomitant]
     Indication: HYPERTENSION
     Dosage: 5 MG
     Route: 048
     Dates: start: 20050501
  12. SIMVASTATIN [Concomitant]
     Indication: HYPERLIPIDAEMIA
     Dosage: 40 MG
     Route: 048
     Dates: start: 20030101
  13. TAMSULOSIN HCL [Concomitant]
     Dosage: 400 MCG/DAY
     Route: 048
     Dates: start: 20091201

REACTIONS (2)
  - PERCUTANEOUS CORONARY INTERVENTION [None]
  - STENT PLACEMENT [None]
